FAERS Safety Report 14184664 (Version 9)
Quarter: 2018Q2

REPORT INFORMATION
  Report Type: Report from Study
  Country: KR (occurrence: KR)
  Receive Date: 20171114
  Receipt Date: 20180608
  Transmission Date: 20180711
  Serious: Yes (Life-Threatening, Hospitalization, Disabling)
  Sender: FDA-Public Use
  Company Number: KR-ROCHE-2019189

PATIENT
  Age: 50 Year
  Sex: Male
  Weight: 53.5 kg

DRUGS (31)
  1. CEFTRIAXONE. [Concomitant]
     Active Substance: CEFTRIAXONE
     Indication: PYREXIA
     Route: 065
     Dates: start: 20170506, end: 20170506
  2. VANCOMYCIN [Concomitant]
     Active Substance: VANCOMYCIN
     Route: 065
     Dates: start: 20171201, end: 20171201
  3. DENOGAN [Concomitant]
     Active Substance: PROPACETAMOL HYDROCHLORIDE
     Route: 065
     Dates: start: 20171103, end: 20171105
  4. DENOGAN [Concomitant]
     Active Substance: PROPACETAMOL HYDROCHLORIDE
     Route: 065
     Dates: start: 20171111, end: 20171111
  5. COSOPT [Concomitant]
     Active Substance: DORZOLAMIDE HYDROCHLORIDE\TIMOLOL MALEATE
     Indication: MACULOPATHY
     Route: 065
     Dates: start: 20170928, end: 20171010
  6. DULCOLAX (BISACODYL) [Concomitant]
     Active Substance: BISACODYL
     Indication: CONSTIPATION
     Route: 065
     Dates: start: 20171107, end: 20171107
  7. NEWHYALUNI [Concomitant]
     Indication: MACULOPATHY
     Dosage: NEWHYALUNI OPHTHALMIC SOLUTION?1 BOX
     Route: 065
     Dates: start: 20170928, end: 20171010
  8. LIDOMEX [Concomitant]
     Active Substance: PREDNISOLONE VALERATE ACETATE
     Indication: DERMATITIS EXFOLIATIVE
     Route: 065
     Dates: start: 20170926
  9. MAGNESIUM OXIDE. [Concomitant]
     Active Substance: MAGNESIUM OXIDE
     Indication: CONSTIPATION
     Route: 065
     Dates: start: 20170724
  10. SODIUM BICARBONATE. [Concomitant]
     Active Substance: SODIUM BICARBONATE
     Indication: PROPHYLAXIS
     Route: 065
     Dates: start: 20170504
  11. TARGIN [Concomitant]
     Active Substance: NALOXONE HYDROCHLORIDE\OXYCODONE HYDROCHLORIDE
     Indication: ABDOMINAL PAIN
     Route: 065
     Dates: start: 20170912, end: 20170915
  12. TAZOPERAN [Concomitant]
     Indication: PYREXIA
     Route: 065
     Dates: start: 20171111, end: 20171111
  13. TAZOPERAN [Concomitant]
     Route: 065
     Dates: start: 20171113, end: 20171113
  14. DENOGAN [Concomitant]
     Active Substance: PROPACETAMOL HYDROCHLORIDE
     Indication: PYREXIA
     Route: 065
     Dates: start: 20170506, end: 20170506
  15. CRAVIT [Concomitant]
     Active Substance: LEVOFLOXACIN
     Indication: MACULOPATHY
     Route: 065
     Dates: start: 20170928, end: 20171010
  16. CYNACTEN [Concomitant]
     Route: 065
     Dates: start: 20171102
  17. ATEZOLIZUMAB. [Suspect]
     Active Substance: ATEZOLIZUMAB
     Indication: COLORECTAL CANCER METASTATIC
     Dosage: ON 17/OCT/2017 AT 16:40, THE PATIENT RECEIVED MOST RECENT DOSE (840 MG) OF ATEZOLIZUMAB PRIOR TO THE
     Route: 042
     Dates: start: 20170914
  18. COBIMETINIB. [Suspect]
     Active Substance: COBIMETINIB
     Indication: COLORECTAL CANCER METASTATIC
     Dosage: ON 30/OCT/2017 AT 11:00, THE PATIENT RECEIVED MOST RECENT DOSE (40 MG, DAILY) OF COBIMETINIB PRIOR T
     Route: 048
     Dates: start: 20170914
  19. TAZOPERAN [Concomitant]
     Route: 065
     Dates: start: 20171111
  20. DUPHALAC (SOUTH KOREA) [Concomitant]
     Route: 065
     Dates: start: 20171111, end: 20171113
  21. TANTUM (SOUTH KOREA) [Concomitant]
     Indication: PROPHYLAXIS
     Route: 065
     Dates: start: 20170503, end: 20170503
  22. MONOLITUM [Concomitant]
     Indication: GASTRITIS PROPHYLAXIS
     Route: 065
     Dates: start: 20171204
  23. VANCOMYCIN [Concomitant]
     Active Substance: VANCOMYCIN
     Route: 065
     Dates: start: 20171127, end: 20171127
  24. DENOGAN [Concomitant]
     Active Substance: PROPACETAMOL HYDROCHLORIDE
     Route: 065
     Dates: start: 20171118, end: 20171120
  25. DENOGAN [Concomitant]
     Active Substance: PROPACETAMOL HYDROCHLORIDE
     Route: 065
     Dates: start: 20171122, end: 20171122
  26. MAGNESIUM OXIDE. [Concomitant]
     Active Substance: MAGNESIUM OXIDE
     Route: 065
     Dates: start: 20170506, end: 20170512
  27. TANTUM (SOUTH KOREA) [Concomitant]
     Route: 065
     Dates: start: 20170724
  28. CEFTRIAXONE. [Concomitant]
     Active Substance: CEFTRIAXONE
     Route: 065
     Dates: start: 20171103
  29. TARGIN [Concomitant]
     Active Substance: NALOXONE HYDROCHLORIDE\OXYCODONE HYDROCHLORIDE
     Route: 065
     Dates: start: 20171130
  30. DUPHALAC (SOUTH KOREA) [Concomitant]
     Indication: CONSTIPATION
     Route: 065
     Dates: start: 20170505, end: 20170505
  31. TARGIN [Concomitant]
     Active Substance: NALOXONE HYDROCHLORIDE\OXYCODONE HYDROCHLORIDE
     Route: 065
     Dates: start: 20171128, end: 20171129

REACTIONS (2)
  - Hyponatraemia [Recovered/Resolved]
  - Acute kidney injury [Recovered/Resolved with Sequelae]

NARRATIVE: CASE EVENT DATE: 20171031
